FAERS Safety Report 4339998-9 (Version None)
Quarter: 2004Q2

REPORT INFORMATION
  Report Type: 
  Country: None (occurrence: None)
  Receive Date: 20040416
  Receipt Date: 20040305
  Transmission Date: 20050107
  Serious: Yes (Hospitalization)
  Sender: FDA-Public Use
  Company Number: JP-MERCK-0403USA00468

PATIENT
  Age: 42 Year
  Sex: Male

DRUGS (5)
  1. ALCOHOL [Suspect]
     Route: 065
  2. AMLODIPINE BESYLATE [Concomitant]
     Indication: HYPERTENSION
     Route: 065
     Dates: start: 20010806, end: 20030714
  3. COZAAR [Suspect]
     Indication: HYPERTENSION
     Route: 048
     Dates: start: 20031219, end: 20040202
  4. COZAAR [Suspect]
     Route: 048
     Dates: start: 20010806, end: 20030714
  5. VITAMIN B COMPLEX [Concomitant]
     Indication: MUSCULOSKELETAL DISCOMFORT
     Route: 048
     Dates: start: 20031219, end: 20040202

REACTIONS (3)
  - BACK PAIN [None]
  - DISEASE RECURRENCE [None]
  - PANCREATITIS ACUTE [None]
